FAERS Safety Report 21623676 (Version 3)
Quarter: 2023Q1

REPORT INFORMATION
  Report Type: Report from Study
  Country: US (occurrence: US)
  Receive Date: 20221121
  Receipt Date: 20230309
  Transmission Date: 20230418
  Serious: No
  Sender: FDA-Public Use
  Company Number: US-ABBVIE-4175838

PATIENT
  Sex: Female
  Weight: 136 kg

DRUGS (24)
  1. HUMIRA [Suspect]
     Active Substance: ADALIMUMAB
     Indication: Rheumatoid arthritis
     Dosage: 11-2021 WAS THE ONSET DATE OF THE EVENT
     Route: 058
     Dates: start: 20211119
  2. HUMIRA [Suspect]
     Active Substance: ADALIMUMAB
     Indication: Crohn^s disease
  3. COLACE [Concomitant]
     Active Substance: DOCUSATE SODIUM
     Indication: Constipation
     Dosage: BEFORE AND AFTER THEIR HUMIRA INJECTION
  4. VITAMIN D3 [Concomitant]
     Active Substance: CHOLECALCIFEROL
     Indication: Product used for unknown indication
     Dosage: 2 TABS ONCE DAILY IN THE P.M
  5. PFIZER-BIONTECH COVID-19 VACCINE [Concomitant]
     Active Substance: TOZINAMERAN
     Indication: COVID-19 immunisation
     Route: 030
  6. DIPHENHYDRAMINE [Concomitant]
     Active Substance: DIPHENHYDRAMINE
     Indication: Product used for unknown indication
     Dosage: 2 TABS AT BEDTIME TO HELP WITH SLEEP AS NEEDED
  7. SULFASALAZINE [Concomitant]
     Active Substance: SULFASALAZINE
     Indication: Crohn^s disease
     Dosage: TAKE 3 TABLETS TWICE DAILY
  8. ALENDRONATE SODIUM [Concomitant]
     Active Substance: ALENDRONATE SODIUM
     Indication: Osteoporosis
  9. METFORMIN HYDROCHLORIDE [Concomitant]
     Active Substance: METFORMIN HYDROCHLORIDE
     Indication: Diabetes mellitus
  10. Triple Strength Fish Oil, [Concomitant]
     Indication: Product used for unknown indication
     Dosage: EPA/DHA OMEGA-3, 2 CAP TWICE DAILY
  11. LOSARTAN POTASSIUM [Concomitant]
     Active Substance: LOSARTAN POTASSIUM
     Indication: Blood pressure measurement
  12. Novolog Flexpen 70/30 insulin [Concomitant]
     Indication: Diabetes mellitus
     Dosage: 100 UNITS TWICE DAILY WITH BREAKFAST AND DINNER
  13. PRAVASTATIN [Concomitant]
     Active Substance: PRAVASTATIN
     Indication: Blood cholesterol increased
     Dosage: 1 TAB ONCE DAILY IN THE P.M.
  14. ACETAMINOPHEN\HYDROCODONE [Concomitant]
     Active Substance: ACETAMINOPHEN\HYDROCODONE
     Indication: Pain
     Dosage: 1-2 TABS EVERY 6 HRS AS NEEDED
  15. LOPERAMIDE HYDROCHLORIDE [Concomitant]
     Active Substance: LOPERAMIDE HYDROCHLORIDE
     Indication: Diarrhoea
     Dosage: 1-2 TABS ONCE DAILY AS NEEDED
  16. Latanoprost Eye Drops 0.005% sol [Concomitant]
     Indication: Glaucoma
     Dosage: INSTILL 1 DROP PER EYE AT BEDTIME
  17. WARFARIN [Concomitant]
     Active Substance: WARFARIN
     Indication: Cerebrovascular accident
     Dosage: 1 TAB ONCE DAILY IN THE P.M. ON MONDAY THROUGH SATURDAY
  18. WARFARIN [Concomitant]
     Active Substance: WARFARIN
     Indication: Cerebrovascular accident
     Dosage: 1 TAB ONCE DAILY IN THE P.M. ON SUNDAY
  19. EZETIMIBE [Concomitant]
     Active Substance: EZETIMIBE
     Indication: Blood triglycerides
  20. CYCLOBENZAPRINE [Concomitant]
     Active Substance: CYCLOBENZAPRINE
     Indication: Muscle spasms
     Dosage: 1 TAB TWICE A DAY FOR 30 DAYS AS NEEDED
  21. METOPROLOL TARTRATE [Concomitant]
     Active Substance: METOPROLOL TARTRATE
     Indication: Blood pressure measurement
     Dosage: 1 TAB TWICE DAILY IN THE A.M. AND P.M
  22. MECLIZINE [Concomitant]
     Active Substance: MECLIZINE HYDROCHLORIDE
     Indication: Vertigo
     Dosage: 1 TAB EVERY 8-12 HOURS AS NEEDED
  23. Ducosate Sodium [Concomitant]
     Indication: Faeces soft
     Dosage: 1 CAPSULE 3-4 TIMES PER WEEK AS NEEDED
  24. LEVOTHYROXINE [Concomitant]
     Active Substance: LEVOTHYROXINE
     Indication: Thyroid disorder
     Dosage: 1 TAB IN THE A.M

REACTIONS (1)
  - Constipation [Recovering/Resolving]
